FAERS Safety Report 16581461 (Version 1)
Quarter: 2019Q3

REPORT INFORMATION
  Report Type: Spontaneous
  Country: KR (occurrence: KR)
  Receive Date: 20190716
  Receipt Date: 20190716
  Transmission Date: 20191004
  Serious: Yes (Hospitalization)
  Sender: FDA-Public Use
  Company Number: KR-ALLERGAN-1928951US

PATIENT
  Sex: Male

DRUGS (3)
  1. ALPHAGAN P [Suspect]
     Active Substance: BRIMONIDINE TARTRATE
     Indication: INTRAOCULAR PRESSURE TEST ABNORMAL
  2. COSOPT [Suspect]
     Active Substance: DORZOLAMIDE HYDROCHLORIDE\TIMOLOL MALEATE
     Indication: PRODUCT USED FOR UNKNOWN INDICATION
     Dosage: UNK, BID
     Route: 047
  3. ALPHAGAN P [Suspect]
     Active Substance: BRIMONIDINE TARTRATE
     Indication: GLAUCOMA
     Dosage: UNK
     Route: 047
     Dates: start: 1999

REACTIONS (2)
  - Renal impairment [Not Recovered/Not Resolved]
  - Inappropriate schedule of product administration [Unknown]
